FAERS Safety Report 7994323-7 (Version None)
Quarter: 2011Q4

REPORT INFORMATION
  Report Type: 
  Country: None (occurrence: None)
  Receive Date: 20111220
  Receipt Date: 20110127
  Transmission Date: 20120403
  Serious: No
  Sender: FDA-Public Use
  Company Number: US-GLAXOSMITHKLINE-A0866313A

PATIENT
  Age: 63 Year
  Sex: Male

DRUGS (4)
  1. SORIATANE [Suspect]
     Indication: PSORIASIS
     Dosage: 25MG TWICE PER DAY
     Route: 048
     Dates: start: 20050101
  2. BLOOD PRESSURE MEDICATION [Concomitant]
  3. DARVOCET [Concomitant]
  4. NEXIUM [Concomitant]

REACTIONS (4)
  - PRODUCT QUALITY ISSUE [None]
  - SKIN IRRITATION [None]
  - RASH MACULAR [None]
  - DRUG INEFFECTIVE [None]
